FAERS Safety Report 5034044-6 (Version None)
Quarter: 2006Q2

REPORT INFORMATION
  Report Type: 
  Country: None (occurrence: None)
  Receive Date: 20060626
  Receipt Date: 20060612
  Transmission Date: 20061013
  Serious: Yes (Death, Hospitalization)
  Sender: FDA-Public Use
  Company Number: HQWYE197613JUN06

PATIENT
  Sex: Male

DRUGS (1)
  1. ENBREL [Suspect]
     Indication: PSORIATIC ARTHROPATHY
     Dosage: 25 MG, UNSPECIFIED FREQUENCY
     Route: 058
     Dates: end: 20060529

REACTIONS (2)
  - CHOLANGITIS [None]
  - SEPSIS [None]
